FAERS Safety Report 5708081-X (Version None)
Quarter: 2008Q2

REPORT INFORMATION
  Report Type: 
  Country: None (occurrence: None)
  Receive Date: 20080417
  Receipt Date: 20080408
  Transmission Date: 20081010
  Serious: Yes (Life-Threatening)
  Sender: FDA-Public Use
  Company Number: BR-ABBOTT-08P-020-0446908-00

PATIENT
  Age: 35 Year
  Sex: Female

DRUGS (4)
  1. DEPAKOTE [Suspect]
     Indication: BORDERLINE PERSONALITY DISORDER
     Route: 048
     Dates: start: 20070301
  2. DEPAKOTE [Suspect]
  3. CLONAZEPAM [Suspect]
     Indication: BORDERLINE PERSONALITY DISORDER
     Route: 048
  4. OLANZAPINE [Concomitant]
     Indication: BORDERLINE PERSONALITY DISORDER
     Route: 048
     Dates: start: 20080101

REACTIONS (1)
  - SUICIDE ATTEMPT [None]
